FAERS Safety Report 5114010-2 (Version None)
Quarter: 2006Q3

REPORT INFORMATION
  Report Type: 
  Country: None (occurrence: None)
  Receive Date: 20060921
  Receipt Date: 20060918
  Transmission Date: 20061208
  Serious: Yes (Hospitalization)
  Sender: FDA-Public Use
  Company Number: TPA2005A01090

PATIENT
  Age: 82 Year
  Sex: Female

DRUGS (5)
  1. ACTOS [Suspect]
     Indication: DIABETES MELLITUS NON-INSULIN-DEPENDENT
     Dosage: ORAL
     Route: 048
  2. NPH PURIFIED PORK ISOPHANE INSULIN [Suspect]
     Indication: DIABETES MELLITUS NON-INSULIN-DEPENDENT
  3. HUMALOG [Suspect]
     Indication: DIABETES MELLITUS INSULIN-DEPENDENT
  4. HUMULIN R [Suspect]
     Indication: DIABETES MELLITUS INSULIN-DEPENDENT
  5. STARLIX [Suspect]
     Indication: DIABETES MELLITUS NON-INSULIN-DEPENDENT

REACTIONS (16)
  - ABDOMINAL PAIN [None]
  - ADRENAL INSUFFICIENCY [None]
  - ADRENOCORTICAL INSUFFICIENCY ACUTE [None]
  - ARRHYTHMIA [None]
  - BLOOD GLUCOSE DECREASED [None]
  - BLOOD GLUCOSE INCREASED [None]
  - DIABETES MELLITUS INSULIN-DEPENDENT [None]
  - DRUG HYPERSENSITIVITY [None]
  - GROWTH HORMONE DEFICIENCY [None]
  - INAPPROPRIATE ANTIDIURETIC HORMONE SECRETION [None]
  - INSULIN C-PEPTIDE DECREASED [None]
  - INSULIN-LIKE GROWTH FACTOR DECREASED [None]
  - LUNG NEOPLASM [None]
  - NAUSEA [None]
  - THERAPY NON-RESPONDER [None]
  - VOMITING [None]
